FAERS Safety Report 9511856 (Version 1)
Quarter: 2013Q3

REPORT INFORMATION
  Report Type: Spontaneous
  Country: US (occurrence: US)
  Receive Date: 20130910
  Receipt Date: 20130910
  Transmission Date: 20140515
  Serious: No
  Sender: FDA-Public Use
  Company Number: US-BAYER-2013-108831

PATIENT
  Age: 20 Year
  Sex: Female
  Weight: 75 kg

DRUGS (1)
  1. ALEVE CAPLET [Suspect]
     Indication: HEADACHE
     Dosage: 5-6 DF, ONCE
     Route: 048
     Dates: start: 20130903, end: 20130903

REACTIONS (4)
  - Extra dose administered [None]
  - Chest discomfort [Not Recovered/Not Resolved]
  - Abdominal discomfort [None]
  - Abdominal pain [Not Recovered/Not Resolved]
